FAERS Safety Report 7109651-7 (Version None)
Quarter: 2010Q4

REPORT INFORMATION
  Report Type: 
  Country: None (occurrence: None)
  Receive Date: 20101118
  Receipt Date: 20101115
  Transmission Date: 20110411
  Serious: Yes (Hospitalization, Other)
  Sender: FDA-Public Use
  Company Number: DE-SP-2010-06265

PATIENT
  Age: 71 Year
  Weight: 84 kg

DRUGS (2)
  1. BCG  THERAPEUTICS [Suspect]
     Indication: BLADDER CANCER
     Dosage: NOT REPORTED
     Route: 043
  2. BISOPROLOL FUMARATE [Concomitant]

REACTIONS (8)
  - ARRHYTHMIA [None]
  - DISCOMFORT [None]
  - HAEMATURIA [None]
  - HYPERTENSION [None]
  - LOSS OF CONSCIOUSNESS [None]
  - PYREXIA [None]
  - TUBERCULOSIS BLADDER [None]
  - VENTRICULAR EXTRASYSTOLES [None]
